FAERS Safety Report 24031375 (Version 2)
Quarter: 2025Q2

REPORT INFORMATION
  Report Type: Spontaneous
  Country: US (occurrence: US)
  Receive Date: 20240629
  Receipt Date: 20250515
  Transmission Date: 20250717
  Serious: Yes (Hospitalization, Other)
  Sender: AUROBINDO
  Company Number: US-MLMSERVICE-20240613-PI098724-00229-1

PATIENT
  Age: 43 Year
  Sex: Female

DRUGS (3)
  1. OXYCODONE [Suspect]
     Active Substance: OXYCODONE
     Indication: Back pain
     Dosage: UNK UNK, ONCE A DAY (HIGH DAILY DOSES)
     Route: 065
  2. MORPHINE [Suspect]
     Active Substance: MORPHINE
     Indication: Back pain
     Dosage: UNK UNK, ONCE A DAY (HIGH DAILY DOSES)
     Route: 065
  3. MONTELUKAST [Concomitant]
     Active Substance: MONTELUKAST
     Indication: Asthma
     Route: 065

REACTIONS (4)
  - Respiratory failure [Unknown]
  - Drug dependence [Unknown]
  - Asthma [Unknown]
  - Respiratory acidosis [Unknown]
